FAERS Safety Report 8001785-8 (Version None)
Quarter: 2011Q4

REPORT INFORMATION
  Report Type: 
  Country: None (occurrence: None)
  Receive Date: 20111222
  Receipt Date: 20111213
  Transmission Date: 20120403
  Serious: Yes (Other)
  Sender: FDA-Public Use
  Company Number: DE-JNJFOC-20111209193

PATIENT
  Sex: Female

DRUGS (3)
  1. PALEXIA RETARD [Suspect]
     Indication: PRODUCT USED FOR UNKNOWN INDICATION
     Dosage: TWICE A DAY
     Route: 048
  2. PALEXIA RETARD [Suspect]
     Dosage: TWICE A DAY
     Route: 048
  3. PALEXIA RETARD [Suspect]
     Dosage: TWICE A DAY
     Route: 048

REACTIONS (1)
  - LARGE INTESTINAL HAEMORRHAGE [None]
